FAERS Safety Report 15795699 (Version 2)
Quarter: 2019Q1

REPORT INFORMATION
  Report Type: Spontaneous
  Country: IT (occurrence: IT)
  Receive Date: 20190107
  Receipt Date: 20190214
  Transmission Date: 20190417
  Serious: Yes (Other)
  Sender: FDA-Public Use
  Company Number: IT-MYLANLABS-2018M1098025

PATIENT
  Age: 60 Year
  Sex: Female

DRUGS (4)
  1. TICLOPIDINE [Suspect]
     Active Substance: TICLOPIDINE
     Indication: MEDICAL DEVICE IMPLANTATION
     Dosage: DOSAGE FORM: UNSPECIFIED
     Route: 065
  2. ABCIXIMAB [Suspect]
     Active Substance: ABCIXIMAB
     Indication: MEDICAL DEVICE IMPLANTATION
     Dosage: 1 DOSAGE FORM, BID
     Route: 042
  3. ABCIXIMAB [Suspect]
     Active Substance: ABCIXIMAB
     Dosage: 0.25 MILLIGRAM/KILOGRAM
     Route: 042
     Dates: start: 20140409
  4. ACETYLSALICYLIC ACID [Suspect]
     Active Substance: ASPIRIN
     Indication: MEDICAL DEVICE IMPLANTATION
     Dosage: DOSAGE FORM: UNSPECIFIED
     Route: 065

REACTIONS (3)
  - Haemorrhage [Unknown]
  - Off label use [Unknown]
  - Product use in unapproved indication [Unknown]

NARRATIVE: CASE EVENT DATE: 20140409
